FAERS Safety Report 7014438-X (Version None)
Quarter: 2010Q3

REPORT INFORMATION
  Report Type: 
  Country: None (occurrence: None)
  Receive Date: 20100927
  Receipt Date: 20100827
  Transmission Date: 20110219
  Serious: No
  Sender: FDA-Public Use
  Company Number: US-MYLANLABS-2010S1015885

PATIENT
  Age: 46 Year
  Sex: Female

DRUGS (1)
  1. ANASTROZOLE TABLETS [Suspect]
     Indication: BREAST CANCER
     Route: 048
     Dates: start: 20100817, end: 20100824

REACTIONS (2)
  - RASH GENERALISED [None]
  - RASH PRURITIC [None]
